FAERS Safety Report 21195540 (Version 2)
Quarter: 2022Q4

REPORT INFORMATION
  Report Type: Spontaneous
  Country: US (occurrence: US)
  Receive Date: 20220810
  Receipt Date: 20221003
  Transmission Date: 20230112
  Serious: Yes (Hospitalization, Other)
  Sender: FDA-Public Use
  Company Number: US-BRISTOL-MYERS SQUIBB COMPANY-2022-087418

PATIENT
  Age: 68 Year
  Sex: Male

DRUGS (1)
  1. REVLIMID [Suspect]
     Active Substance: LENALIDOMIDE
     Indication: Hyperkalaemia
     Route: 048
     Dates: start: 20210525

REACTIONS (4)
  - Urinary tract infection [Unknown]
  - Colitis [Unknown]
  - Intestinal obstruction [Unknown]
  - Off label use [Unknown]
